FAERS Safety Report 23068575 (Version 1)
Quarter: 2023Q4

REPORT INFORMATION
  Report Type: Spontaneous
  Country: US (occurrence: None)
  Receive Date: 20231014
  Receipt Date: 20231014
  Transmission Date: 20240110
  Serious: Yes (Life-Threatening, Hospitalization)
  Sender: FDA-Public Use
  Company Number: None

PATIENT
  Age: 71 Year
  Sex: Male
  Weight: 94.95 kg

DRUGS (14)
  1. NEXLETOL [Suspect]
     Active Substance: BEMPEDOIC ACID
     Indication: Blood cholesterol increased
     Dosage: OTHER QUANTITY : 1 TABLET(S);?FREQUENCY : DAILY;?
     Route: 048
     Dates: start: 20231012, end: 20231012
  2. METOPROLOL [Concomitant]
     Active Substance: METOPROLOL
  3. IRBESARTAN [Concomitant]
     Active Substance: IRBESARTAN
  4. CRESTOR [Concomitant]
     Active Substance: ROSUVASTATIN CALCIUM
  5. DEVICE [Concomitant]
     Active Substance: DEVICE
  6. QUERCITIN [Concomitant]
  7. COENZYME Q10 [Concomitant]
     Active Substance: DIETARY SUPPLEMENT\UBIDECARENONE
  8. VITAMIN D3 [Concomitant]
     Active Substance: CHOLECALCIFEROL
  9. JWH-018 [Concomitant]
     Active Substance: JWH-018
  10. VITAMINS [Concomitant]
     Active Substance: VITAMINS
  11. ZINC [Concomitant]
     Active Substance: ZINC
  12. VITAMIN C [Concomitant]
     Active Substance: ASCORBIC ACID
  13. ASPIRIN [Concomitant]
     Active Substance: ASPIRIN
  14. OMEGA 3 [Concomitant]
     Active Substance: CAPSAICIN

REACTIONS (12)
  - Pruritus [None]
  - Sneezing [None]
  - Urticaria [None]
  - Dyspnoea [None]
  - Blood pressure increased [None]
  - Blood urea increased [None]
  - Blood creatinine increased [None]
  - Eye swelling [None]
  - Erythema [None]
  - Feeling hot [None]
  - Throat irritation [None]
  - Rhinorrhoea [None]

NARRATIVE: CASE EVENT DATE: 20231012
